FAERS Safety Report 12808470 (Version 3)
Quarter: 2017Q1

REPORT INFORMATION
  Report Type: Report from Study
  Country: PE (occurrence: PE)
  Receive Date: 20161004
  Receipt Date: 20170228
  Transmission Date: 20170428
  Serious: Yes (Other)
  Sender: FDA-Public Use
  Company Number: PE-GILEAD-2016-0235852

PATIENT
  Age: 39 Year
  Sex: Female
  Weight: 54 kg

DRUGS (5)
  1. SERTRALINE [Concomitant]
     Active Substance: SERTRALINE HYDROCHLORIDE
     Dosage: 50 MG, QD
  2. CLONAZEPAM. [Concomitant]
     Active Substance: CLONAZEPAM
     Dosage: .5 MG, QD
  3. EFAVIRENZ/EMTRICITABINE/TENOFOVIR DISOPROXIL FUMARATE [Suspect]
     Active Substance: EFAVIRENZ\EMTRICITABINE\TENOFOVIR DISOPROXIL FUMARATE
     Indication: HIV INFECTION
     Dosage: 1 DF, QD
     Route: 048
     Dates: start: 20160106
  4. SERTRALINE [Concomitant]
     Active Substance: SERTRALINE HYDROCHLORIDE
     Dosage: 25 MG, UNK
  5. RISPERIDONE. [Concomitant]
     Active Substance: RISPERIDONE
     Dosage: 2 MG, QD

REACTIONS (1)
  - Major depression [Not Recovered/Not Resolved]

NARRATIVE: CASE EVENT DATE: 20160909
